FAERS Safety Report 4461289-6 (Version None)
Quarter: 2004Q3

REPORT INFORMATION
  Report Type: 
  Country: None (occurrence: None)
  Receive Date: 20040928
  Receipt Date: 20040916
  Transmission Date: 20050211
  Serious: Yes (Other)
  Sender: FDA-Public Use
  Company Number: BR-GLAXOSMITHKLINE-A0527139A

PATIENT
  Age: 3 Year
  Weight: 14 kg

DRUGS (1)
  1. BACTROBAN [Suspect]
     Indication: ILL-DEFINED DISORDER
     Dosage: 15G AS REQUIRED
     Route: 061

REACTIONS (1)
  - HYPOCHROMASIA [None]
